FAERS Safety Report 8985848 (Version 3)
Quarter: 2014Q2

REPORT INFORMATION
  Report Type: Report from Study
  Country: DE (occurrence: DE)
  Receive Date: 20121226
  Receipt Date: 20140512
  Transmission Date: 20141212
  Serious: Yes (Hospitalization)
  Sender: FDA-Public Use
  Company Number: PHHO2012DE018310

PATIENT
  Sex: 0

DRUGS (5)
  1. EVEROLIMUS [Suspect]
     Indication: BREAST CANCER METASTATIC
     Dosage: 5 MG, UNK
     Route: 048
     Dates: start: 20120703, end: 20121119
  2. EVEROLIMUS [Suspect]
     Dosage: 5 MG, UNK
     Route: 048
     Dates: start: 20121212
  3. RAMIPRIL [Suspect]
     Indication: HYPERTENSION
     Dosage: 5 MG, UNK
  4. EXEMESTANE [Suspect]
     Indication: BREAST CANCER METASTATIC
     Dosage: 25 MG, UNK
     Route: 048
     Dates: start: 20120703
  5. VALORON [Suspect]
     Indication: PAIN
     Dosage: UNK

REACTIONS (1)
  - VIIIth nerve injury [Recovered/Resolved]
